FAERS Safety Report 7562696-5 (Version None)
Quarter: 2011Q2

REPORT INFORMATION
  Report Type: 
  Country: None (occurrence: None)
  Receive Date: 20110622
  Receipt Date: 20110615
  Transmission Date: 20111010
  Serious: Yes (Other)
  Sender: FDA-Public Use
  Company Number: BR-PFIZER INC-2011131055

PATIENT
  Age: 72 Year
  Sex: Female
  Weight: 57 kg

DRUGS (1)
  1. XALATAN [Suspect]
     Indication: GLAUCOMA
     Dosage: 3 UG, 1X/DAY (1 DROP PER DAY IN THE EYES)
     Route: 047
     Dates: start: 20090101

REACTIONS (8)
  - VISION BLURRED [None]
  - EYE IRRITATION [None]
  - BLOOD CHOLESTEROL ABNORMAL [None]
  - HYPERTENSION [None]
  - EYE PRURITUS [None]
  - HEADACHE [None]
  - CONJUNCTIVITIS [None]
  - EYE SWELLING [None]
